FAERS Safety Report 25872960 (Version 1)
Quarter: 2025Q4

REPORT INFORMATION
  Report Type: Spontaneous
  Country: US (occurrence: None)
  Receive Date: 20251001
  Receipt Date: 20251001
  Transmission Date: 20260117
  Serious: No
  Sender: FDA-CTU
  Company Number: None

PATIENT
  Age: 26 Year
  Sex: Male
  Weight: 68.04 kg

DRUGS (5)
  1. CLINDAMYCIN [Suspect]
     Active Substance: CLINDAMYCIN
  2. AMOXICILLIN [Suspect]
     Active Substance: AMOXICILLIN
  3. CLINDAMYCIN [Concomitant]
     Active Substance: CLINDAMYCIN
  4. DOXYCYCLINE [Concomitant]
     Active Substance: DOXYCYCLINE
  5. CEPHALEXIN [Concomitant]
     Active Substance: CEPHALEXIN

REACTIONS (3)
  - Product dispensing error [None]
  - Drug dispensed to wrong patient [None]
  - Wrong product administered [None]

NARRATIVE: CASE EVENT DATE: 20251001
